FAERS Safety Report 16761177 (Version 1)
Quarter: 2019Q3

REPORT INFORMATION
  Report Type: Spontaneous
  Country: US (occurrence: US)
  Receive Date: 20190830
  Receipt Date: 20190830
  Transmission Date: 20191005
  Serious: No
  Sender: FDA-Public Use
  Company Number: US-ANIPHARMA-2019-US-004492

PATIENT
  Age: 46 Year
  Sex: Female
  Weight: 86.18 kg

DRUGS (4)
  1. ANASTROZOLE. [Suspect]
     Active Substance: ANASTROZOLE
     Indication: BREAST CANCER
     Route: 048
     Dates: start: 201803
  2. GABAPENTIN. [Concomitant]
     Active Substance: GABAPENTIN
  3. ACYCLOVIR. [Concomitant]
     Active Substance: ACYCLOVIR
  4. CORTISOL [Concomitant]
     Active Substance: HYDROCORTISONE

REACTIONS (5)
  - Carpal tunnel syndrome [Unknown]
  - Burning sensation [Not Recovered/Not Resolved]
  - Arthralgia [Not Recovered/Not Resolved]
  - C-reactive protein increased [Not Recovered/Not Resolved]
  - Red blood cell sedimentation rate increased [Not Recovered/Not Resolved]
